FAERS Safety Report 5097406-7 (Version None)
Quarter: 2006Q3

REPORT INFORMATION
  Report Type: 
  Country: None (occurrence: None)
  Receive Date: 20060901
  Receipt Date: 20060814
  Transmission Date: 20061208
  Serious: Yes (Other)
  Sender: FDA-Public Use
  Company Number: 2006RR-03340

PATIENT
  Age: 71 Year
  Sex: Male

DRUGS (9)
  1. IBUPROFEN [Suspect]
     Indication: BACK PAIN
     Dosage: 400 MG, TID, ORAL
     Route: 048
     Dates: end: 20060310
  2. AMITRIPTYLINE HCL [Concomitant]
  3. ASPIRIN [Concomitant]
  4. ATORVASTATIN CALCIUM [Concomitant]
  5. DILTIAZEM [Concomitant]
  6. FUROSEMIDE [Concomitant]
  7. GLYCERYL TRINITRATE [Concomitant]
  8. DINITRATE D'ISOSORBIDE (ISOSORBIDE DINITRATE) [Concomitant]
  9. PERINDOPRIL ERBUMINE [Concomitant]

REACTIONS (1)
  - ANGINA PECTORIS [None]
